FAERS Safety Report 16022149 (Version 14)
Quarter: 2024Q1

REPORT INFORMATION
  Report Type: Spontaneous
  Country: CA (occurrence: CA)
  Receive Date: 20190301
  Receipt Date: 20240106
  Transmission Date: 20240410
  Serious: Yes (Life-Threatening, Hospitalization, Other)
  Sender: FDA-Public Use
  Company Number: CA-AUROBINDO-AUR-APL-2019-010080

PATIENT
  Age: 77 Year
  Sex: Female

DRUGS (163)
  1. AMLODIPINE [Suspect]
     Active Substance: AMLODIPINE BESYLATE
     Indication: Hypertension
     Dosage: 5 MILLIGRAM, ONCE A DAY
     Route: 065
  2. AMLODIPINE [Suspect]
     Active Substance: AMLODIPINE BESYLATE
     Indication: Coronary artery disease
  3. AMLODIPINE [Suspect]
     Active Substance: AMLODIPINE BESYLATE
     Indication: Angina pectoris
  4. AMLODIPINE [Suspect]
     Active Substance: AMLODIPINE BESYLATE
     Indication: Chest pain
  5. AMLODIPINE [Suspect]
     Active Substance: AMLODIPINE BESYLATE
     Indication: Constipation
  6. AMLODIPINE [Suspect]
     Active Substance: AMLODIPINE BESYLATE
     Indication: Hypertension
     Dosage: 5 MILLIGRAM, ONCE A DAY
     Route: 065
  7. AMLODIPINE [Suspect]
     Active Substance: AMLODIPINE BESYLATE
     Indication: Coronary artery disease
  8. AMLODIPINE [Suspect]
     Active Substance: AMLODIPINE BESYLATE
     Indication: Angina pectoris
  9. AMLODIPINE [Suspect]
     Active Substance: AMLODIPINE BESYLATE
     Indication: Chest pain
  10. AMLODIPINE [Suspect]
     Active Substance: AMLODIPINE BESYLATE
     Indication: Constipation
  11. CYCLOBENZAPRINE [Suspect]
     Active Substance: CYCLOBENZAPRINE
     Indication: Fibromyalgia
     Dosage: 5 MILLIGRAM, 3 TIMES A DAY
     Route: 065
  12. CYCLOBENZAPRINE [Suspect]
     Active Substance: CYCLOBENZAPRINE
     Indication: Pain
     Dosage: 5 MILLIGRAM, ONCE A DAY
     Route: 065
  13. CYCLOBENZAPRINE [Suspect]
     Active Substance: CYCLOBENZAPRINE
     Indication: Seizure prophylaxis
     Dosage: 1.87 MILLIGRAM, ONCE A DAY
     Route: 065
  14. CYCLOBENZAPRINE [Suspect]
     Active Substance: CYCLOBENZAPRINE
     Dosage: 200 MILLIGRAM, TWO TIMES A DAY
     Route: 065
  15. CYCLOBENZAPRINE [Suspect]
     Active Substance: CYCLOBENZAPRINE
     Dosage: 2 MILLIGRAM, ONCE A DAY
     Route: 065
  16. CYCLOBENZAPRINE [Suspect]
     Active Substance: CYCLOBENZAPRINE
     Dosage: 0.63 MILLIGRAM
     Route: 065
  17. CYCLOBENZAPRINE [Suspect]
     Active Substance: CYCLOBENZAPRINE
     Dosage: 15 MILLIGRAM, 3 TIMES A DAY
     Route: 065
  18. GALANTAMINE [Suspect]
     Active Substance: GALANTAMINE
     Indication: Dementia
     Dosage: 16 MILLIGRAM, ONCE A DAY
     Route: 065
  19. LEVOFLOXACIN [Suspect]
     Active Substance: LEVOFLOXACIN
     Indication: Urinary tract infection
     Dosage: 250 MILLIGRAM, ONCE A DAY
     Route: 065
  20. LEVOFLOXACIN [Suspect]
     Active Substance: LEVOFLOXACIN
     Indication: Thyroid disorder
     Dosage: 200 MILLIGRAM, ONCE A DAY
     Route: 065
  21. LEVOFLOXACIN [Suspect]
     Active Substance: LEVOFLOXACIN
     Indication: Radioactive iodine therapy
     Dosage: 600 MILLIGRAM, ONCE A DAY
     Route: 065
  22. LEVOFLOXACIN [Suspect]
     Active Substance: LEVOFLOXACIN
     Dosage: 650 MILLIGRAM, ONCE A DAY
     Route: 065
  23. OMEPRAZOLE [Suspect]
     Active Substance: OMEPRAZOLE
     Indication: Duodenal ulcer
     Dosage: 20 MILLIGRAM, ONCE A DAY
     Route: 048
  24. OMEPRAZOLE [Suspect]
     Active Substance: OMEPRAZOLE
     Indication: Small intestine carcinoma
  25. OMEPRAZOLE [Suspect]
     Active Substance: OMEPRAZOLE
     Indication: Hypertension
  26. OMEPRAZOLE [Suspect]
     Active Substance: OMEPRAZOLE
     Indication: Angina pectoris
  27. OMEPRAZOLE [Suspect]
     Active Substance: OMEPRAZOLE
     Indication: Chest pain
  28. OMEPRAZOLE [Suspect]
     Active Substance: OMEPRAZOLE
     Indication: Coronary artery disease
  29. ROSUVASTATIN [Suspect]
     Active Substance: ROSUVASTATIN
     Indication: Cerebrovascular accident
     Dosage: 20 MILLIGRAM, TWO TIMES A DAY
     Route: 048
  30. ROSUVASTATIN [Suspect]
     Active Substance: ROSUVASTATIN
     Indication: Hypertension
     Dosage: 10 MILLIGRAM, ONCE A DAY
     Route: 048
  31. ROSUVASTATIN [Suspect]
     Active Substance: ROSUVASTATIN
     Dosage: UNK
     Route: 048
  32. ROSUVASTATIN [Suspect]
     Active Substance: ROSUVASTATIN
     Dosage: 200 MILLIGRAM, TWO TIMES A DAY
     Route: 048
  33. ACEBUTOLOL HYDROCHLORIDE [Suspect]
     Active Substance: ACEBUTOLOL HYDROCHLORIDE
     Indication: Coronary artery disease
     Dosage: 200 MILLIGRAM, TWO TIMES A DAY
     Route: 065
  34. ACEBUTOLOL HYDROCHLORIDE [Suspect]
     Active Substance: ACEBUTOLOL HYDROCHLORIDE
     Indication: Hypertension
     Dosage: 100 MILLIGRAM, TWO TIMES A DAY
     Route: 065
  35. ACEBUTOLOL HYDROCHLORIDE [Suspect]
     Active Substance: ACEBUTOLOL HYDROCHLORIDE
     Indication: Angina pectoris
     Dosage: 200 MILLIGRAM, ONCE A DAY
     Route: 065
  36. ACEBUTOLOL HYDROCHLORIDE [Suspect]
     Active Substance: ACEBUTOLOL HYDROCHLORIDE
     Indication: Chest pain
     Dosage: 100 MILLIGRAM, ONCE A DAY
     Route: 065
  37. ACEBUTOLOL HYDROCHLORIDE [Suspect]
     Active Substance: ACEBUTOLOL HYDROCHLORIDE
     Dosage: 200 MILLIGRAM, TWO TIMES A WEEK
     Route: 065
  38. ACEBUTOLOL HYDROCHLORIDE [Suspect]
     Active Substance: ACEBUTOLOL HYDROCHLORIDE
     Dosage: 400 MILLIGRAM, TWO TIMES A DAY
     Route: 065
  39. ACEBUTOLOL HYDROCHLORIDE [Suspect]
     Active Substance: ACEBUTOLOL HYDROCHLORIDE
     Dosage: UNK
     Route: 065
  40. ACEBUTOLOL HYDROCHLORIDE [Suspect]
     Active Substance: ACEBUTOLOL HYDROCHLORIDE
     Dosage: 500 MILLIGRAM, ONCE A DAY
     Route: 065
  41. ACEBUTOLOL HYDROCHLORIDE [Suspect]
     Active Substance: ACEBUTOLOL HYDROCHLORIDE
     Dosage: 50 MILLIGRAM, TWO TIMES A DAY
     Route: 065
  42. PHENYLEPHRINE [Suspect]
     Active Substance: PHENYLEPHRINE HYDROCHLORIDE
     Indication: Pain
     Dosage: UNK
     Route: 065
  43. ACETAMINOPHEN [Suspect]
     Active Substance: ACETAMINOPHEN
     Indication: Pain
     Dosage: 650 MILLIGRAM, ONCE A DAY
     Route: 065
  44. ACETAMINOPHEN [Suspect]
     Active Substance: ACETAMINOPHEN
     Indication: Fibromyalgia
     Dosage: 650 MILLIGRAM
     Route: 065
  45. ACETAMINOPHEN [Suspect]
     Active Substance: ACETAMINOPHEN
     Indication: Angina pectoris
     Dosage: UNK UNK, ONCE A DAY
     Route: 065
  46. AGGRENOX [Suspect]
     Active Substance: ASPIRIN\DIPYRIDAMOLE
     Indication: Cerebrovascular accident
     Dosage: 1 DOSAGE FORM, TWO TIMES A DAY
     Route: 065
  47. AMITRIPTYLINE [Suspect]
     Active Substance: AMITRIPTYLINE
     Indication: Insomnia
     Dosage: 75 MILLIGRAM, ONCE A DAY
     Route: 065
  48. AMITRIPTYLINE [Suspect]
     Active Substance: AMITRIPTYLINE
     Indication: Insomnia
     Dosage: 75 MILLIGRAM, ONCE A DAY
     Route: 065
  49. AMITRIPTYLINE [Suspect]
     Active Substance: AMITRIPTYLINE
     Indication: Angina pectoris
     Dosage: 50 MILLIGRAM
  50. AMITRIPTYLINE [Suspect]
     Active Substance: AMITRIPTYLINE
     Indication: Radioactive iodine therapy
     Dosage: UNK
     Route: 048
  51. AMITRIPTYLINE [Suspect]
     Active Substance: AMITRIPTYLINE
     Indication: Thyroid disorder
  52. AMITRIPTYLINE [Suspect]
     Active Substance: AMITRIPTYLINE
     Indication: Oedema
  53. AMITRIPTYLINE [Suspect]
     Active Substance: AMITRIPTYLINE
     Indication: Hypertension
  54. AMITRIPTYLINE [Suspect]
     Active Substance: AMITRIPTYLINE
     Indication: Fibromyalgia
  55. AMITRIPTYLINE [Suspect]
     Active Substance: AMITRIPTYLINE
     Indication: Duodenal ulcer
  56. AMITRIPTYLINE [Suspect]
     Active Substance: AMITRIPTYLINE
     Indication: Coronary artery disease
  57. AMITRIPTYLINE [Suspect]
     Active Substance: AMITRIPTYLINE
     Indication: Chest pain
  58. AMITRIPTYLINE [Suspect]
     Active Substance: AMITRIPTYLINE
     Indication: Dementia
  59. AMITRIPTYLINE [Suspect]
     Active Substance: AMITRIPTYLINE
     Indication: Constipation
  60. AMITRIPTYLINE [Suspect]
     Active Substance: AMITRIPTYLINE
     Indication: Arthritis
  61. AMITRIPTYLINE [Suspect]
     Active Substance: AMITRIPTYLINE
     Indication: Insomnia
     Dosage: 75 MILLIGRAM, ONCE A DAY
     Route: 065
  62. AMITRIPTYLINE [Suspect]
     Active Substance: AMITRIPTYLINE
     Dosage: 50 MILLIGRAM, ONCE A DAY
     Route: 065
  63. AMITRIPTYLINE HYDROCHLORIDE [Suspect]
     Active Substance: AMITRIPTYLINE HYDROCHLORIDE
     Indication: Insomnia
     Dosage: 75 MILLIGRAM, ONCE A DAY
     Route: 065
  64. CARBAMAZEPINE [Suspect]
     Active Substance: CARBAMAZEPINE
     Indication: Prophylaxis
     Dosage: 200 MILLIGRAM, TWO TIMES A DAY
     Route: 065
  65. CYCLOBENZAPRINE [Suspect]
     Active Substance: CYCLOBENZAPRINE
     Indication: Fibromyalgia
     Dosage: 5 MILLIGRAM, 3 TIMES A DAY
     Route: 065
  66. DILTIAZEM HYDROCHLORIDE [Suspect]
     Active Substance: DILTIAZEM HYDROCHLORIDE
     Indication: Hypertension
     Dosage: 360 MILLIGRAM, ONCE A DAY
     Route: 065
  67. DILTIAZEM HYDROCHLORIDE [Suspect]
     Active Substance: DILTIAZEM HYDROCHLORIDE
     Indication: Coronary artery disease
     Dosage: UNK
     Route: 065
  68. DILTIAZEM HYDROCHLORIDE [Suspect]
     Active Substance: DILTIAZEM HYDROCHLORIDE
     Indication: Angina pectoris
  69. OXAZEPAM [Suspect]
     Active Substance: OXAZEPAM
     Indication: Insomnia
     Dosage: 15 MILLIGRAM, ONCE A DAY
     Route: 065
  70. ASPIRIN\CAFFEINE [Suspect]
     Active Substance: ASPIRIN\CAFFEINE
     Indication: Product used for unknown indication
     Dosage: UNK
     Route: 065
  71. CALCIUM [Suspect]
     Active Substance: CALCIUM
     Indication: Product used for unknown indication
     Dosage: UNK
     Route: 065
  72. CALCIUM ASCORBATE [Suspect]
     Active Substance: CALCIUM ASCORBATE
     Indication: Product used for unknown indication
     Dosage: UNK
     Route: 065
  73. ACETAMINOPHEN\CAFFEINE [Suspect]
     Active Substance: ACETAMINOPHEN\CAFFEINE
     Indication: Pain
     Dosage: 650 MILLIGRAM, ONCE A DAY
     Route: 065
  74. ACETAMINOPHEN\CAFFEINE [Suspect]
     Active Substance: ACETAMINOPHEN\CAFFEINE
     Indication: Radioactive iodine therapy
     Dosage: UNK
     Route: 065
  75. ACETAMINOPHEN\CAFFEINE [Suspect]
     Active Substance: ACETAMINOPHEN\CAFFEINE
     Indication: Hypertension
     Dosage: 60 MILLIGRAM, ONCE A DAY
     Route: 065
  76. ACETAMINOPHEN\CAFFEINE [Suspect]
     Active Substance: ACETAMINOPHEN\CAFFEINE
     Indication: Coronary artery disease
     Dosage: 50 MILLIGRAM, ONCE A DAY
     Route: 065
  77. ACETAMINOPHEN\CAFFEINE [Suspect]
     Active Substance: ACETAMINOPHEN\CAFFEINE
     Indication: Chronic obstructive pulmonary disease
  78. ACETAMINOPHEN\CAFFEINE [Suspect]
     Active Substance: ACETAMINOPHEN\CAFFEINE
     Indication: Chest pain
  79. ACETAMINOPHEN\CAFFEINE [Suspect]
     Active Substance: ACETAMINOPHEN\CAFFEINE
     Indication: Cerebrovascular accident
  80. ACETAMINOPHEN\CAFFEINE [Suspect]
     Active Substance: ACETAMINOPHEN\CAFFEINE
     Indication: Angina pectoris
  81. CARBAMAZEPINE [Suspect]
     Active Substance: CARBAMAZEPINE
     Indication: Seizure
     Dosage: 200 MILLIGRAM, TWO TIMES A DAY
     Route: 065
  82. CARBAMAZEPINE [Suspect]
     Active Substance: CARBAMAZEPINE
     Indication: Seizure prophylaxis
     Dosage: 2 DOSAGE FORM, ONCE A DAY
     Route: 065
  83. CARBAMAZEPINE [Suspect]
     Active Substance: CARBAMAZEPINE
     Indication: Fibromyalgia
     Dosage: 100 MILLIGRAM, ONCE A DAY
     Route: 065
  84. CARBAMAZEPINE [Suspect]
     Active Substance: CARBAMAZEPINE
     Dosage: 400 MILLIGRAM, TWO TIMES A DAY
     Route: 065
  85. CRANBERRY [Suspect]
     Active Substance: CRANBERRY
     Indication: Bladder disorder
     Dosage: 500 MILLIGRAM, 3 TIMES A DAY
     Route: 065
  86. CRANBERRY [Suspect]
     Active Substance: CRANBERRY
     Indication: Bladder disorder
     Dosage: 500 MILLIGRAM, 3 TIMES A DAY
     Route: 065
  87. DIAZEPAM [Suspect]
     Active Substance: DIAZEPAM
     Indication: Insomnia
     Dosage: UNK
     Route: 065
  88. DIAZEPAM [Suspect]
     Active Substance: DIAZEPAM
     Indication: Coronary artery disease
  89. DIAZEPAM [Suspect]
     Active Substance: DIAZEPAM
     Indication: Chest pain
  90. DIAZEPAM [Suspect]
     Active Substance: DIAZEPAM
     Indication: Angina unstable
  91. DIAZEPAM [Suspect]
     Active Substance: DIAZEPAM
     Indication: Angina pectoris
  92. DILTIAZEM [Suspect]
     Active Substance: DILTIAZEM
     Indication: Coronary artery disease
     Dosage: 360 MILLIGRAM, ONCE A DAY
     Route: 065
  93. DILTIAZEM [Suspect]
     Active Substance: DILTIAZEM
     Indication: Hypertension
     Dosage: UNK
     Route: 065
  94. DILTIAZEM [Suspect]
     Active Substance: DILTIAZEM
     Indication: Chest pain
     Dosage: 300 MILLIGRAM, ONCE A DAY
     Route: 065
  95. DILTIAZEM [Suspect]
     Active Substance: DILTIAZEM
     Dosage: 500 MILLIGRAM, ONCE A DAY
     Route: 065
  96. ASPIRIN [Suspect]
     Active Substance: ASPIRIN
     Indication: Product used for unknown indication
     Dosage: UNK
     Route: 048
  97. DULCOLAX (BISACODYL) [Suspect]
     Active Substance: BISACODYL
     Indication: Constipation
     Dosage: 2 DOSAGE FORM, ONCE A DAY
     Route: 065
  98. FUROSEMIDE [Suspect]
     Active Substance: FUROSEMIDE
     Indication: Oedema
     Dosage: 40 MILLIGRAM, ONCE A DAY
     Route: 065
  99. FUROSEMIDE [Suspect]
     Active Substance: FUROSEMIDE
     Dosage: 10 MILLIGRAM, ONCE A DAY
     Route: 065
  100. FUROSEMIDE [Suspect]
     Active Substance: FUROSEMIDE
     Dosage: 20 MILLIGRAM, ONCE A DAY
     Route: 065
  101. FUROSEMIDE [Suspect]
     Active Substance: FUROSEMIDE
     Dosage: 4 MILLIGRAM, ONCE A DAY
     Route: 065
  102. GLUCOSAMINE [Suspect]
     Active Substance: GLUCOSAMINE
     Indication: Pain
     Dosage: UNK
     Route: 065
  103. GLUCOSAMINE [Suspect]
     Active Substance: GLUCOSAMINE
     Indication: Arthritis
     Dosage: 250 MILLIGRAM, ONCE A DAY
     Route: 065
  104. GLUCOSAMINE [Suspect]
     Active Substance: GLUCOSAMINE
     Dosage: 500 MILLIGRAM, TWO TIMES A DAY
     Route: 065
  105. LACTULOSE [Suspect]
     Active Substance: LACTULOSE
     Indication: Constipation
     Dosage: 15 MILLILITER, ONCE A DAY, AS REQUIRED
     Route: 065
  106. LACTULOSE [Suspect]
     Active Substance: LACTULOSE
     Dosage: UNK
     Route: 065
  107. LACTULOSE [Suspect]
     Active Substance: LACTULOSE
     Dosage: UNK
     Route: 065
  108. LACTULOSE [Suspect]
     Active Substance: LACTULOSE
     Dosage: UNK
     Route: 065
  109. LEVOTHYROXINE SODIUM [Suspect]
     Active Substance: LEVOTHYROXINE SODIUM
     Indication: Thyroid disorder
     Dosage: 0.088 MILLIGRAM, ONCE A DAY
     Route: 065
  110. LEVOTHYROXINE SODIUM [Suspect]
     Active Substance: LEVOTHYROXINE SODIUM
     Indication: Radioactive iodine therapy
     Dosage: 0.88 MILLIGRAM, ONCE A DAY
     Route: 065
  111. LEVOTHYROXINE SODIUM [Suspect]
     Active Substance: LEVOTHYROXINE SODIUM
     Dosage: 0.8 MILLIGRAM, ONCE A DAY
     Route: 065
  112. LEVOTHYROXINE SODIUM [Suspect]
     Active Substance: LEVOTHYROXINE SODIUM
     Dosage: 88 MILLIGRAM, ONCE A DAY
     Route: 065
  113. LEVOTHYROXINE SODIUM [Suspect]
     Active Substance: LEVOTHYROXINE SODIUM
     Dosage: 250 MILLIGRAM, ONCE A DAY
     Route: 065
  114. LEVOTHYROXINE SODIUM [Suspect]
     Active Substance: LEVOTHYROXINE SODIUM
     Dosage: 622 MILLIGRAM, ONCE A DAY
     Route: 065
  115. LEVALBUTEROL [Suspect]
     Active Substance: LEVALBUTEROL
     Indication: Product used for unknown indication
     Dosage: UNK
     Route: 065
  116. MAGNESIUM HYDROXIDE [Suspect]
     Active Substance: MAGNESIUM HYDROXIDE
     Indication: Constipation
     Dosage: 311 MILLIGRAM, UNK
     Route: 065
  117. MAGNESIUM HYDROXIDE [Suspect]
     Active Substance: MAGNESIUM HYDROXIDE
     Dosage: 622 MILLIGRAM, ONCE A DAY
     Route: 065
  118. MAGNESIUM HYDROXIDE [Suspect]
     Active Substance: MAGNESIUM HYDROXIDE
     Dosage: 2 DOSAGE FORM, ONCE A DAY
     Route: 065
  119. MAGNESIUM HYDROXIDE [Suspect]
     Active Substance: MAGNESIUM HYDROXIDE
     Indication: Constipation
     Dosage: UNK
     Route: 065
  120. NITROGLYCERIN [Suspect]
     Active Substance: NITROGLYCERIN
     Indication: Coronary artery disease
     Dosage: 0.6 MILLIGRAM, EVERY HOUR
     Route: 065
  121. NITROGLYCERIN [Suspect]
     Active Substance: NITROGLYCERIN
     Indication: Chest pain
     Dosage: 0.4 MILLIGRAM, ONCE A DAY
     Route: 065
  122. NITROGLYCERIN [Suspect]
     Active Substance: NITROGLYCERIN
     Indication: Angina pectoris
     Dosage: 0.6 MILLIGRAM, ONCE A DAY
     Route: 061
  123. NITROGLYCERIN [Suspect]
     Active Substance: NITROGLYCERIN
     Dosage: 1 DOSAGE FORM, ONCE A DAY
     Route: 065
  124. MORPHINE SULFATE [Suspect]
     Active Substance: MORPHINE SULFATE
     Indication: Pain
     Dosage: 10 MILLIGRAM, ONCE A DAY
     Route: 030
  125. MORPHINE SULFATE [Suspect]
     Active Substance: MORPHINE SULFATE
     Indication: Fibromyalgia
     Dosage: 2 DOSAGE FORM, ONCE A DAY
     Route: 065
  126. MORPHINE SULFATE [Suspect]
     Active Substance: MORPHINE SULFATE
     Dosage: 10 MILLIGRAM, ONCE A DAY
     Route: 030
  127. MORPHINE SULFATE [Suspect]
     Active Substance: MORPHINE SULFATE
     Dosage: UNK
     Route: 030
  128. OXAZEPAM [Suspect]
     Active Substance: OXAZEPAM
     Indication: Insomnia
     Dosage: 15 MILLIGRAM, ONCE A DAY
     Route: 065
  129. OXAZEPAM [Suspect]
     Active Substance: OXAZEPAM
     Indication: Hypertension
     Dosage: 40 MILLIGRAM, ONCE A DAY
     Route: 065
  130. OXAZEPAM [Suspect]
     Active Substance: OXAZEPAM
     Indication: Coronary artery disease
     Dosage: UNK
     Route: 065
  131. OXAZEPAM [Suspect]
     Active Substance: OXAZEPAM
     Dosage: UNK
     Route: 065
  132. OXAZEPAM [Suspect]
     Active Substance: OXAZEPAM
     Dosage: UNK
     Route: 065
  133. PERSANTINE [Suspect]
     Active Substance: DIPYRIDAMOLE
     Indication: Cerebrovascular accident
     Dosage: 0.5 MILLIGRAM, TWO TIMES A DAY
     Route: 065
  134. PERSANTINE [Suspect]
     Active Substance: DIPYRIDAMOLE
     Dosage: 1 DOSAGE FORM, ONCE A DAY
     Route: 065
  135. PHENOBARBITAL [Suspect]
     Active Substance: PHENOBARBITAL
     Indication: Coronary artery disease
     Dosage: 6 MILLIGRAM, ONCE A DAY
     Route: 061
  136. PHENOBARBITAL [Suspect]
     Active Substance: PHENOBARBITAL
     Indication: Chest pain
  137. PHENOBARBITAL [Suspect]
     Active Substance: PHENOBARBITAL
     Indication: Angina pectoris
  138. QUINAPRIL [Suspect]
     Active Substance: QUINAPRIL
     Indication: Hypertension
     Dosage: 40 MILLIGRAM, ONCE A DAY
     Route: 065
  139. QUINAPRIL [Suspect]
     Active Substance: QUINAPRIL
     Indication: Coronary artery disease
     Dosage: 20 MILLIGRAM, ONCE A DAY
     Route: 065
  140. QUININE SULFATE [Suspect]
     Active Substance: QUININE SULFATE
     Indication: Pain
     Dosage: UNK
     Route: 065
  141. ALBUTEROL [Suspect]
     Active Substance: ALBUTEROL
     Indication: Product used for unknown indication
     Dosage: 200 MICROGRAM, FOUR TIMES/DAY
     Route: 065
  142. ALBUTEROL [Suspect]
     Active Substance: ALBUTEROL
     Dosage: 100 MICROGRAM, ONCE A DAY
     Route: 065
  143. ALBUTEROL [Suspect]
     Active Substance: ALBUTEROL
     Dosage: 400 MICROGRAM, FOUR TIMES/DAY
     Route: 065
  144. SALICYLAMIDE [Suspect]
     Active Substance: SALICYLAMIDE
     Indication: Pain
     Dosage: UNK
     Route: 065
  145. SPIRIVA [Suspect]
     Active Substance: TIOTROPIUM BROMIDE MONOHYDRATE
     Indication: Chronic obstructive pulmonary disease
     Dosage: 18 MICROGRAM, ONCE A DAY
     Route: 065
  146. SPIRIVA [Suspect]
     Active Substance: TIOTROPIUM BROMIDE MONOHYDRATE
     Dosage: UNK
     Route: 065
  147. TIOTROPIUM BROMIDE [Suspect]
     Active Substance: TIOTROPIUM BROMIDE
     Indication: Chronic obstructive pulmonary disease
     Dosage: 18 MICROGRAM, ONCE A DAY
     Route: 065
  148. CRANBERRY [Suspect]
     Active Substance: CRANBERRY
     Indication: Bladder disorder
     Dosage: 500 MILLIGRAM, 3 TIMES A DAY
     Route: 065
  149. ASCORBIC ACID\CRANBERRY [Concomitant]
     Active Substance: ASCORBIC ACID\CRANBERRY
     Indication: Product used for unknown indication
     Dosage: 500 MILLIGRAM, ONCE A DAY
     Route: 065
  150. ASPIRIN;DIPYRIDAMOLE [Concomitant]
     Indication: Cerebrovascular accident
     Dosage: UNK
     Route: 065
  151. CRANBERRY [Concomitant]
     Active Substance: CRANBERRY
     Indication: Product used for unknown indication
     Dosage: UNK
     Route: 065
  152. DIPYRIDAMOLE [Concomitant]
     Active Substance: DIPYRIDAMOLE
     Indication: Cerebrovascular accident
     Dosage: 25 MILLIGRAM, TWO TIMES A DAY
     Route: 065
  153. DIPYRIDAMOLE [Concomitant]
     Active Substance: DIPYRIDAMOLE
     Dosage: 200 MILLIGRAM, TWO TIMES A DAY
     Route: 065
  154. DIPYRIDAMOLE [Concomitant]
     Active Substance: DIPYRIDAMOLE
     Dosage: 2 DOSAGE FORM, ONCE A DAY
     Route: 065
  155. DIPYRIDAMOLE [Concomitant]
     Active Substance: DIPYRIDAMOLE
     Dosage: 5 DOSAGE FORM, ONCE A DAY
     Route: 065
  156. DIPYRIDAMOLE [Concomitant]
     Active Substance: DIPYRIDAMOLE
     Dosage: 1 DOSAGE FORM, ONCE A DAY
     Route: 065
  157. PHOSPHORIC ACID [Concomitant]
     Active Substance: PHOSPHORIC ACID
     Indication: Product used for unknown indication
     Dosage: UNK
     Route: 065
  158. CALCIUM POLYCARBOPHIL [Concomitant]
     Active Substance: CALCIUM POLYCARBOPHIL
     Indication: Product used for unknown indication
     Dosage: UNK
     Route: 065
  159. POTASSIUM SORBATE [Concomitant]
     Active Substance: POTASSIUM SORBATE
     Indication: Product used for unknown indication
     Dosage: UNK
     Route: 065
  160. PSYLLIUM HUSK [Concomitant]
     Active Substance: PSYLLIUM HUSK
     Indication: Constipation
     Dosage: UNK
     Route: 065
  161. ZINC [Concomitant]
     Active Substance: PYRITHIONE ZINC\ZINC\ZINC CHLORIDE
     Indication: Product used for unknown indication
     Dosage: UNK
     Route: 065
  162. ZINC [Concomitant]
     Active Substance: PYRITHIONE ZINC\ZINC\ZINC CHLORIDE
     Dosage: UNK
     Route: 065
  163. SODIUM PICOSULFATE [Suspect]
     Active Substance: SODIUM PICOSULFATE
     Indication: Constipation
     Dosage: 2 DOSAGE FORM, ONCE A DAY
     Route: 065

REACTIONS (21)
  - Balance disorder [Recovered/Resolved]
  - Blood calcium decreased [Recovered/Resolved]
  - Cognitive disorder [Recovered/Resolved]
  - Constipation [Recovered/Resolved]
  - Creatinine renal clearance decreased [Recovered/Resolved]
  - Depressed level of consciousness [Recovered/Resolved]
  - Dyspnoea [Recovered/Resolved]
  - Fall [Recovered/Resolved]
  - Hypotension [Recovered/Resolved]
  - Mobility decreased [Recovered/Resolved]
  - Orthostatic hypotension [Recovered/Resolved]
  - Pain [Recovered/Resolved]
  - Sedation [Recovered/Resolved]
  - Sedation complication [Recovered/Resolved]
  - Renal function test abnormal [Recovered/Resolved]
  - Toxicity to various agents [Recovered/Resolved]
  - Multiple drug therapy [Recovered/Resolved]
  - Product use in unapproved indication [Recovered/Resolved]
  - Drug interaction [Recovered/Resolved]
  - Drug abuse [Recovered/Resolved]
  - Overdose [Recovered/Resolved]
